FAERS Safety Report 7967157-7 (Version None)
Quarter: 2011Q4

REPORT INFORMATION
  Report Type: 
  Country: None (occurrence: None)
  Receive Date: 20111208
  Receipt Date: 20111208
  Transmission Date: 20120403
  Serious: Yes (Other)
  Sender: FDA-Public Use
  Company Number: None

PATIENT
  Age: 69 Year
  Sex: Female
  Weight: 94.8018 kg

DRUGS (2)
  1. LANSOPRAZOLE [Suspect]
     Indication: BARRETT'S OESOPHAGUS
     Dosage: 30 MG DAILY ORAL
     Route: 048
     Dates: start: 20111115, end: 20111117
  2. LANSOPRAZOLE [Suspect]
     Indication: GASTROOESOPHAGEAL REFLUX DISEASE
     Dosage: 30 MG DAILY ORAL
     Route: 048
     Dates: start: 20111115, end: 20111117

REACTIONS (2)
  - ABDOMINAL PAIN UPPER [None]
  - NAUSEA [None]
